FAERS Safety Report 4909852-X (Version None)
Quarter: 2006Q1

REPORT INFORMATION
  Report Type: 
  Country: None (occurrence: None)
  Receive Date: 20060208
  Receipt Date: 20060130
  Transmission Date: 20060701
  Serious: Yes (Hospitalization, Disabling, Other)
  Sender: FDA-Public Use
  Company Number: 2006010356

PATIENT
  Age: 45 Year
  Sex: Female

DRUGS (8)
  1. PROCARDIA [Suspect]
     Indication: VASODILATATION
     Dosage: 20 OR 30 MILLIGRAM (DAILY), ORAL
     Route: 048
     Dates: start: 19990101
  2. ZOLOFT [Suspect]
     Indication: DEPRESSION
     Dosage: 100 MG (100 MG, DAILY), ORAL
     Route: 048
     Dates: start: 20000101
  3. ZOLOFT [Suspect]
     Indication: NERVOUSNESS
     Dosage: 100 MG (100 MG, DAILY), ORAL
     Route: 048
     Dates: start: 20000101
  4. LEVOXYL [Concomitant]
  5. INSULIN [Concomitant]
  6. ASPIRIN [Concomitant]
  7. XANAX [Suspect]
     Indication: DEPRESSION
     Dosage: 0.5 MG (0.5 MG, PRN), ORAL
     Route: 048
     Dates: start: 20000101
  8. XANAX [Suspect]
     Indication: NERVOUSNESS
     Dosage: 0.5 MG (0.5 MG, PRN), ORAL
     Route: 048
     Dates: start: 20000101

REACTIONS (7)
  - ANXIETY [None]
  - DEPRESSION [None]
  - HYPOTHYROIDISM [None]
  - IMPAIRED WORK ABILITY [None]
  - MENTAL DISORDER [None]
  - NERVOUSNESS [None]
  - PHARMACEUTICAL PRODUCT COMPLAINT [None]
